FAERS Safety Report 4744045-0 (Version None)
Quarter: 2005Q3

REPORT INFORMATION
  Report Type: 
  Country: None (occurrence: None)
  Receive Date: 20050812
  Receipt Date: 20050802
  Transmission Date: 20060218
  Serious: Yes (Hospitalization)
  Sender: FDA-Public Use
  Company Number: PHRM2005FR02202

PATIENT
  Age: 59 Year
  Sex: Male

DRUGS (9)
  1. ZOLADEX [Suspect]
     Indication: PROSTATE CANCER
     Dosage: 1 INJECTION EVERY 3 WEEKS
     Route: 058
     Dates: start: 20050301
  2. TAXOTERE [Suspect]
     Indication: PROSTATE CANCER
     Dosage: 1 INJECTION EVERY 3 WEEKS
     Route: 042
     Dates: start: 20050311
  3. PREDNISOLONE [Suspect]
     Indication: PROSTATE CANCER
     Dosage: 1 INJECTION EVERY 3 WEEKS
     Route: 042
     Dates: start: 20050301
  4. CASODEX [Suspect]
     Indication: PROSTATE CANCER
     Route: 048
     Dates: start: 20050301
  5. ESOMEPRAZOLE [Suspect]
  6. SKENAN [Suspect]
  7. TRIFLUCAN [Suspect]
     Route: 048
     Dates: start: 20050502
  8. ZELITREX                                /DEN/ [Suspect]
     Dosage: UNK, UNK
     Dates: start: 20050501
  9. ZOMETA [Suspect]
     Indication: PROSTATE CANCER
     Dosage: 1 INJECTION EVERY 3 WEEKS
     Route: 042
     Dates: start: 20050301

REACTIONS (8)
  - BLOOD ALKALINE PHOSPHATASE INCREASED [None]
  - BLOOD LACTATE DEHYDROGENASE INCREASED [None]
  - DERMATITIS EXFOLIATIVE [None]
  - GAMMA-GLUTAMYLTRANSFERASE INCREASED [None]
  - HAEMOGLOBIN DECREASED [None]
  - MEAN CELL VOLUME INCREASED [None]
  - MUCOSAL INFLAMMATION [None]
  - PSORIASIS [None]
